FAERS Safety Report 16613642 (Version 5)
Quarter: 2020Q1

REPORT INFORMATION
  Report Type: Spontaneous
  Country: CA (occurrence: CA)
  Receive Date: 20190723
  Receipt Date: 20200101
  Transmission Date: 20200409
  Serious: Yes (Other)
  Sender: FDA-Public Use
  Company Number: CA-CELLTRION INC.-2019CA022687

PATIENT

DRUGS (8)
  1. ARTHROTEC [Concomitant]
     Active Substance: DICLOFENAC SODIUM\MISOPROSTOL
     Dosage: UNK, DAILY
     Route: 048
     Dates: start: 201905
  2. INFLECTRA [Suspect]
     Active Substance: INFLIXIMAB-DYYB
     Dosage: 400 MG, EVERY 6 WEEKS (3 MG/KG)
     Route: 042
  3. REMICADE [Concomitant]
     Active Substance: INFLIXIMAB
     Dosage: 300 MG EVERY 9 WEEKS
     Route: 042
     Dates: start: 200903
  4. COLCHICINE. [Concomitant]
     Active Substance: COLCHICINE
     Dosage: UNK
  5. VOLTAREN [DICLOFENAC] [Concomitant]
     Active Substance: DICLOFENAC SODIUM
     Dosage: 50 MG, 2X/DAY AS NEEDED
     Dates: start: 2019
  6. INFLECTRA [Suspect]
     Active Substance: INFLIXIMAB-DYYB
     Indication: PSORIATIC ARTHROPATHY
     Dosage: 300 MG, EVERY 9 WEEKS
     Route: 042
     Dates: start: 20190823
  7. INFLECTRA [Suspect]
     Active Substance: INFLIXIMAB-DYYB
     Indication: ANKYLOSING SPONDYLITIS
     Dosage: 300 MG, EVERY 9 WEEKS
     Route: 042
     Dates: start: 20191018, end: 20191018
  8. DIOVAN [Concomitant]
     Active Substance: VALSARTAN
     Dosage: UNK, 1X/DAY
     Route: 048

REACTIONS (12)
  - Inappropriate schedule of product administration [Unknown]
  - Off label use [Unknown]
  - Vitamin D deficiency [Not Recovered/Not Resolved]
  - Arthritis [Not Recovered/Not Resolved]
  - Gout [Unknown]
  - Blood 25-hydroxycholecalciferol decreased [Unknown]
  - Hyperuricaemia [Unknown]
  - Haemolysis [Unknown]
  - Arthralgia [Unknown]
  - Haematocrit decreased [Unknown]
  - Pain in extremity [Unknown]
  - Condition aggravated [Unknown]

NARRATIVE: CASE EVENT DATE: 20190529
